FAERS Safety Report 6845829-5 (Version None)
Quarter: 2010Q3

REPORT INFORMATION
  Report Type: 
  Country: None (occurrence: None)
  Receive Date: 20100715
  Receipt Date: 20071107
  Transmission Date: 20110219
  Serious: No
  Sender: FDA-Public Use
  Company Number: US-PFIZER INC-2007072004

PATIENT
  Sex: Female
  Weight: 68.2 kg

DRUGS (4)
  1. CHANTIX [Suspect]
     Indication: SMOKING CESSATION THERAPY
     Route: 048
     Dates: start: 20070815, end: 20070820
  2. DRUG, UNSPECIFIED [Suspect]
  3. LEVAQUIN [Concomitant]
  4. CETIRIZINE HCL AND PSEUDOEPHEDRINE [Concomitant]

REACTIONS (2)
  - DIZZINESS [None]
  - ORAL CANDIDIASIS [None]
